FAERS Safety Report 10157593 (Version 3)
Quarter: 2014Q2

REPORT INFORMATION
  Report Type: Spontaneous
  Country: US (occurrence: US)
  Receive Date: 20140507
  Receipt Date: 20140527
  Transmission Date: 20141212
  Serious: Yes (Hospitalization)
  Sender: FDA-Public Use
  Company Number: US-BAXTER-2014BAX021680

PATIENT
  Sex: Male

DRUGS (6)
  1. DIANEAL LOW CALCIUM [Suspect]
     Indication: PERITONEAL DIALYSIS
     Route: 033
     Dates: start: 20120605
  2. DIANEAL LOW CALCIUM [Suspect]
     Route: 033
     Dates: start: 20120605
  3. DIANEAL LOW CALCIUM [Suspect]
     Indication: PERITONEAL DIALYSIS
     Route: 033
     Dates: start: 20120605
  4. DIANEAL LOW CALCIUM [Suspect]
     Route: 033
     Dates: start: 20120605
  5. DIANEAL LOW CALCIUM (ULTRABAG) [Suspect]
     Indication: PERITONEAL DIALYSIS
     Route: 033
  6. DIANEAL LOW CALCIUM (ULTRABAG) [Suspect]
     Indication: PERITONEAL DIALYSIS
     Route: 033

REACTIONS (5)
  - Fall [Recovered/Resolved]
  - Haematoma [Unknown]
  - Swelling [Recovered/Resolved]
  - Abasia [Recovering/Resolving]
  - Fluid retention [Unknown]
